FAERS Safety Report 20100130 (Version 4)
Quarter: 2021Q4

REPORT INFORMATION
  Report Type: Report from Study
  Country: US (occurrence: US)
  Receive Date: 20211123
  Receipt Date: 20211209
  Transmission Date: 20220304
  Serious: Yes (Other)
  Sender: FDA-Public Use
  Company Number: NVSC2021US267080

PATIENT
  Age: 43 Year

DRUGS (1)
  1. ENTRESTO [Suspect]
     Active Substance: SACUBITRIL\VALSARTAN
     Indication: Product used for unknown indication
     Dosage: UNK, BID
     Route: 048
     Dates: start: 202111

REACTIONS (11)
  - Atrial fibrillation [Unknown]
  - Dyspnoea [Unknown]
  - Muscle strain [Unknown]
  - Insomnia [Unknown]
  - Weight decreased [Unknown]
  - Hypersomnia [Unknown]
  - Pleural effusion [Unknown]
  - Productive cough [Unknown]
  - Nausea [Unknown]
  - Fatigue [Unknown]
  - Dizziness [Unknown]

NARRATIVE: CASE EVENT DATE: 20211124
